FAERS Safety Report 8281548-9 (Version None)
Quarter: 2012Q2

REPORT INFORMATION
  Report Type: 
  Country: None (occurrence: None)
  Receive Date: 20120410
  Receipt Date: 20120326
  Transmission Date: 20120825
  Serious: Yes (Hospitalization)
  Sender: FDA-Public Use
  Company Number: DSJ-2012-06050

PATIENT
  Age: 8 Decade
  Sex: Female

DRUGS (3)
  1. BUDESONIDE/FORMOTEROL (FORMOTEROL FUMARATE, BUDESONIDE) (FORMOTEROL FU [Concomitant]
  2. PANTOPRAZOLE (PANTOPRAZOLE) (PANTOPRAZOLE) [Concomitant]
  3. BENICAR HCT [Suspect]
     Indication: HYPERTENSION
     Dosage: 20/12.5 MG (1 IN 1 D), PER ORAL
     Route: 048
     Dates: start: 20050101

REACTIONS (2)
  - GLAUCOMA SURGERY [None]
  - CATARACT OPERATION [None]
